FAERS Safety Report 10209247 (Version 3)
Quarter: 2014Q2

REPORT INFORMATION
  Report Type: Spontaneous
  Country: KR (occurrence: KR)
  Receive Date: 20140530
  Receipt Date: 20140630
  Transmission Date: 20141212
  Serious: Yes (Life-Threatening, Other)
  Sender: FDA-Public Use
  Company Number: KR-ASTRAZENECA-2014SE36204

PATIENT
  Age: 30103 Day
  Sex: Female

DRUGS (5)
  1. BRILINTA [Suspect]
     Indication: ACUTE MYOCARDIAL INFARCTION
     Route: 048
     Dates: start: 20140421, end: 20140520
  2. DILATREND [Concomitant]
  3. ASPIRIN [Concomitant]
  4. GODEX [Concomitant]
  5. NEUSTATIN-A [Concomitant]

REACTIONS (2)
  - Haemoglobin decreased [Recovered/Resolved]
  - Gastrointestinal haemorrhage [Recovered/Resolved]
